FAERS Safety Report 4709485-4 (Version None)
Quarter: 2005Q3

REPORT INFORMATION
  Report Type: 
  Country: None (occurrence: None)
  Receive Date: 20050705
  Receipt Date: 20050617
  Transmission Date: 20060218
  Serious: Yes (Life-Threatening, Other)
  Sender: FDA-Public Use
  Company Number: 2005-00969

PATIENT
  Age: 76 Year
  Sex: Male
  Weight: 94.7 kg

DRUGS (31)
  1. VELCADE [Suspect]
     Indication: MULTIPLE MYELOMA
     Dosage: 2.80 MG,  INTRAVENOUS
     Route: 042
     Dates: start: 20050315, end: 20050412
  2. SCIO-469 CAPSULE [Suspect]
     Indication: MULTIPLE MYELOMA
     Dosage: 60.00 MG, TID, ORAL
     Route: 048
     Dates: start: 20050222, end: 20050414
  3. LEKOVIT CA (COLECALCIFEROL, CALCIUM CARBOANTE) [Concomitant]
  4. FOLIC ACID [Concomitant]
  5. COLACE (DOCUSATE SODIUM) [Concomitant]
  6. SENNA (SENNA) [Concomitant]
  7. VALTREX (VALCICLOVIR HYDROCHLORIDE) [Concomitant]
  8. OXYCODONE (OXYCODONE) [Concomitant]
  9. PAXIL [Concomitant]
  10. DURAGESIC-100 [Concomitant]
  11. COUMADIN [Concomitant]
  12. CELEBREX [Concomitant]
  13. PEPCID AC [Concomitant]
  14. COENZME Q10 (UBIDECARENONE) [Concomitant]
  15. GRAPE SEED EXTRACT (VITIS VINIFERA EXTRACT) [Concomitant]
  16. BILBERRY (MYRTILLUS) [Concomitant]
  17. LUTEIN, OTHER NUTRIENTS [Concomitant]
  18. GINSENG (GINSENG) [Concomitant]
  19. VITAMIN C (ASCORBIC ACID) [Concomitant]
  20. TEA, GREEN (TEA , GREEN) [Concomitant]
  21. VITAMIN E /001105/(TOCOPHEROL) [Concomitant]
  22. CENTRUM SILVER (ASCORBIC ACID, TOCOPHERYL ACETATE , CALCIUM, ZINC , MI [Concomitant]
  23. GINKGO BILOBA (GINKGO BILOBA) [Concomitant]
  24. SELENIUM (SELENIUM) [Concomitant]
  25. MILK THISTLE/PLANT ALKALOIDS AND OTHER NATURAL PRODUCTS [Concomitant]
  26. B12 (CYANOCOBALAMIN-TANNIN COMPLEX) [Concomitant]
  27. GLUCOSAMINE W/CHONDROITIN SULFATES (ASCORBIC ACID, GLUCOSMAINE SULFATE [Concomitant]
  28. ARANESP [Concomitant]
  29. ZOMETA [Concomitant]
  30. AMBIEN [Concomitant]
  31. CHLORHEXIDINE (CHLORHEXIDINE) [Concomitant]

REACTIONS (8)
  - ANAEMIA [None]
  - BLINDNESS TRANSIENT [None]
  - BLOOD PRESSURE DECREASED [None]
  - CONDITION AGGRAVATED [None]
  - DIZZINESS [None]
  - HAEMATOTOXICITY [None]
  - HEART RATE INCREASED [None]
  - THROMBOCYTOPENIA [None]
